FAERS Safety Report 20647632 (Version 1)
Quarter: 2022Q1

REPORT INFORMATION
  Report Type: Report from Study
  Country: US (occurrence: US)
  Receive Date: 20220329
  Receipt Date: 20220329
  Transmission Date: 20220423
  Serious: Yes (Other)
  Sender: FDA-Public Use
  Company Number: US-ABBVIE-22K-163-4330560-00

PATIENT
  Age: 49 Year
  Sex: Female

DRUGS (6)
  1. HUMIRA [Suspect]
     Active Substance: ADALIMUMAB
     Indication: Psoriatic arthropathy
     Dosage: CITRATE FREE
     Route: 058
  2. HUMIRA [Suspect]
     Active Substance: ADALIMUMAB
     Indication: Psoriasis
  3. HUMIRA [Suspect]
     Active Substance: ADALIMUMAB
     Indication: Rheumatoid arthritis
  4. Pfizer/BioNTech Covid vaccine [Concomitant]
     Indication: COVID-19 immunisation
     Dosage: 1ST DOSE
     Route: 030
     Dates: start: 20210402, end: 20210402
  5. Pfizer/BioNTech Covid vaccine [Concomitant]
     Dosage: 2ND DOSE
     Route: 030
     Dates: start: 20210502, end: 20210502
  6. Pfizer/BioNTech Covid vaccine [Concomitant]
     Dosage: 3RD DOSE
     Route: 030
     Dates: start: 20220214, end: 20220214

REACTIONS (10)
  - Embolism venous [Unknown]
  - Knee operation [Recovered/Resolved]
  - Eye operation [Recovering/Resolving]
  - Thyroidectomy [Unknown]
  - Vitreous floaters [Unknown]
  - Vision blurred [Unknown]
  - Scar [Unknown]
  - COVID-19 [Recovered/Resolved]
  - Sarcoidosis [Not Recovered/Not Resolved]
  - Biopsy lung [Unknown]

NARRATIVE: CASE EVENT DATE: 20200522
